FAERS Safety Report 23837841 (Version 1)
Quarter: 2024Q2

REPORT INFORMATION
  Report Type: Spontaneous
  Country: US (occurrence: None)
  Receive Date: 20240508
  Receipt Date: 20240508
  Transmission Date: 20240716
  Serious: Yes (Hospitalization)
  Sender: FDA-Public Use
  Company Number: None

PATIENT
  Age: 72 Year
  Sex: Female

DRUGS (5)
  1. SILDENAFIL CITRATE [Suspect]
     Active Substance: SILDENAFIL CITRATE
     Indication: Pulmonary hypertension
     Dosage: FREQUENCY : 3 TIMES A DAY;?
     Route: 048
     Dates: start: 202112
  2. SENNA [Concomitant]
  3. BUMETANIDE [Concomitant]
  4. ORENCIA CLICKINJECT AUTOINJ [Concomitant]
     Indication: Rheumatoid arthritis
  5. OPSUMIT [Concomitant]
     Indication: Pulmonary hypertension

REACTIONS (3)
  - Fluid retention [None]
  - Constipation [None]
  - Drug interaction [None]

NARRATIVE: CASE EVENT DATE: 20240501
